FAERS Safety Report 7780374-4 (Version None)
Quarter: 2011Q3

REPORT INFORMATION
  Report Type: 
  Country: None (occurrence: None)
  Receive Date: 20110922
  Receipt Date: 20110913
  Transmission Date: 20111222
  Serious: Yes (Other)
  Sender: FDA-Public Use
  Company Number: LEO-2011-00749

PATIENT
  Sex: Male

DRUGS (2)
  1. INNOHEP [Suspect]
     Indication: PHLEBITIS
     Dosage: SUBCUTANEOUS
     Route: 058
  2. CHEMOTHERAPY (CHEMOTHERAPEUTICS) [Concomitant]

REACTIONS (3)
  - DISEASE RECURRENCE [None]
  - PHLEBITIS [None]
  - OFF LABEL USE [None]
